FAERS Safety Report 21398106 (Version 1)
Quarter: 2022Q3

REPORT INFORMATION
  Report Type: Spontaneous
  Country: US (occurrence: US)
  Receive Date: 20220930
  Receipt Date: 20220930
  Transmission Date: 20221027
  Serious: No
  Sender: FDA-Public Use
  Company Number: US-SA-SAC20220926000953

PATIENT
  Age: 11 Year
  Sex: Female

DRUGS (1)
  1. DUPIXENT [Suspect]
     Active Substance: DUPILUMAB
     Dosage: 200MG, FREQUENCY: OTHER
     Route: 058
     Dates: start: 20211203

REACTIONS (6)
  - Condition aggravated [Unknown]
  - Erythema [Unknown]
  - Dermatitis [Unknown]
  - Lip erythema [Unknown]
  - Cheilitis [Unknown]
  - Arthralgia [Unknown]

NARRATIVE: CASE EVENT DATE: 20211207
